FAERS Safety Report 14140544 (Version 2)
Quarter: 2017Q4

REPORT INFORMATION
  Report Type: Spontaneous
  Country: US (occurrence: US)
  Receive Date: 20171030
  Receipt Date: 20171214
  Transmission Date: 20180321
  Serious: No
  Sender: FDA-Public Use
  Company Number: US-PFIZER INC-2017458422

PATIENT
  Age: 75 Year
  Sex: Male
  Weight: 104.3 kg

DRUGS (3)
  1. EUCRISA [Suspect]
     Active Substance: CRISABOROLE
     Indication: ECZEMA
     Dosage: UNK, TWICE A DAY
     Route: 061
     Dates: start: 20171010, end: 20171115
  2. VITAMIN D [Concomitant]
     Active Substance: CHOLECALCIFEROL
     Indication: VITAMIN D DECREASED
     Dosage: 800 MG, ONCE A DAY
     Route: 048
  3. ASPIRIN. [Concomitant]
     Active Substance: ASPIRIN
     Indication: PROPHYLAXIS
     Dosage: 81 MG, ONE TIME A DAY
     Route: 048

REACTIONS (5)
  - Peripheral swelling [Recovering/Resolving]
  - Pain [Recovering/Resolving]
  - Dermatitis [Not Recovered/Not Resolved]
  - Malaise [Recovering/Resolving]
  - Joint swelling [Recovering/Resolving]

NARRATIVE: CASE EVENT DATE: 20171015
